FAERS Safety Report 9528428 (Version 2)
Quarter: 2013Q4

REPORT INFORMATION
  Report Type: Spontaneous
  Country: FI (occurrence: FI)
  Receive Date: 20130917
  Receipt Date: 20131007
  Transmission Date: 20140711
  Serious: Yes (Other)
  Sender: FDA-Public Use
  Company Number: FI-ASTELLAS-2013EU007814

PATIENT
  Sex: Female

DRUGS (1)
  1. BETMIGA [Suspect]
     Indication: MIXED INCONTINENCE
     Dosage: UNK
     Route: 065
     Dates: start: 20130701

REACTIONS (1)
  - Arrhythmia [Recovered/Resolved]
